FAERS Safety Report 4308975-6 (Version None)
Quarter: 2004Q1

REPORT INFORMATION
  Report Type: 
  Country: None (occurrence: None)
  Receive Date: 20040227
  Receipt Date: 20040216
  Transmission Date: 20041129
  Serious: Yes (Other)
  Sender: FDA-Public Use
  Company Number: ES-JNJFOC-20040203230

PATIENT
  Age: 57 Year
  Sex: Male

DRUGS (3)
  1. RISPERDAL CONSTA [Suspect]
     Indication: SCHIZOPHRENIA, PARANOID TYPE
     Dosage: 1 IN 15 DAY, INTRAMUSCULAR
     Route: 030
     Dates: start: 20031117, end: 20040205
  2. TERTENSIF (INDAPAMIDE) [Concomitant]
  3. DIANBEN (METFORMIN HYDROCHLORIDE) [Concomitant]

REACTIONS (1)
  - THROMBOCYTOPENIA [None]
